FAERS Safety Report 9399171 (Version 4)
Quarter: 2013Q4

REPORT INFORMATION
  Report Type: Spontaneous
  Country: BR (occurrence: BR)
  Receive Date: 20130715
  Receipt Date: 20131007
  Transmission Date: 20140711
  Serious: Yes (Hospitalization, Other)
  Sender: FDA-Public Use
  Company Number: BR-BRISTOL-MYERS SQUIBB COMPANY-19091859

PATIENT
  Age: 81 Year
  Sex: Female
  Weight: 65 kg

DRUGS (6)
  1. ONGLYZA TABS [Suspect]
     Indication: DIABETES MELLITUS
     Route: 048
  2. CRESTOR [Suspect]
     Route: 048
     Dates: start: 2007
  3. TICAGRELOR [Suspect]
     Indication: ANTICOAGULANT THERAPY
     Route: 048
     Dates: start: 201307, end: 201307
  4. METFORMIN [Concomitant]
     Indication: DIABETES MELLITUS
     Dates: start: 2003
  5. ASPIRINA [Concomitant]
     Dosage: ASPIRINA PREVENT
     Dates: start: 2003
  6. MONOCORDIL [Concomitant]
     Indication: ANTICOAGULANT THERAPY
     Dates: end: 201307

REACTIONS (7)
  - Angina pectoris [Recovered/Resolved]
  - Viral infection [Recovered/Resolved]
  - Fall [Recovered/Resolved]
  - Rib fracture [Recovered/Resolved]
  - Dyspepsia [Recovered/Resolved]
  - Decreased appetite [Recovered/Resolved]
  - Dizziness [Recovered/Resolved]
